FAERS Safety Report 24411738 (Version 1)
Quarter: 2024Q4

REPORT INFORMATION
  Report Type: Report from Study
  Country: US (occurrence: US)
  Receive Date: 20241008
  Receipt Date: 20241008
  Transmission Date: 20250115
  Serious: Yes (Other)
  Sender: GILEAD
  Company Number: US-GILEAD-2024-0689813

PATIENT
  Sex: Male

DRUGS (1)
  1. SACITUZUMAB GOVITECAN-HZIY [Suspect]
     Active Substance: SACITUZUMAB GOVITECAN-HZIY
     Indication: Bladder cancer
     Dosage: 75% OF TRODELVY; TWO WEEKS ON AND ONE WEEK OFF
     Route: 042
     Dates: start: 202301

REACTIONS (2)
  - Bladder cancer recurrent [Not Recovered/Not Resolved]
  - Off label use [Unknown]
